FAERS Safety Report 6769392-2 (Version None)
Quarter: 2010Q2

REPORT INFORMATION
  Report Type: 
  Country: None (occurrence: None)
  Receive Date: 20100615
  Receipt Date: 20100602
  Transmission Date: 20101027
  Serious: Yes (Other)
  Sender: FDA-Public Use
  Company Number: PHHY2010CA37070

PATIENT

DRUGS (3)
  1. RASILEZ [Suspect]
     Dosage: UNK
  2. NORVASC [Concomitant]
  3. HYDROCHLOROTHIAZIDE [Concomitant]

REACTIONS (1)
  - RENAL FAILURE ACUTE [None]
